FAERS Safety Report 4676740-6 (Version None)
Quarter: 2005Q2

REPORT INFORMATION
  Report Type: 
  Country: None (occurrence: None)
  Receive Date: 20050527
  Receipt Date: 20050516
  Transmission Date: 20051028
  Serious: Yes (Other)
  Sender: FDA-Public Use
  Company Number: 2005076144

PATIENT
  Age: 77 Year
  Sex: Female
  Weight: 97.0698 kg

DRUGS (2)
  1. CELEBREX [Suspect]
     Indication: OSTEOPOROSIS
     Dosage: 200 MG (200 MG, 1 IN 1 D), ORAL
     Route: 048
  2. PLETAL [Concomitant]

REACTIONS (3)
  - ARTHRALGIA [None]
  - BODY HEIGHT DECREASED [None]
  - KNEE ARTHROPLASTY [None]
